FAERS Safety Report 14884367 (Version 1)
Quarter: 2018Q2

REPORT INFORMATION
  Report Type: Report from Study
  Country: US (occurrence: US)
  Receive Date: 20180511
  Receipt Date: 20180511
  Transmission Date: 20180711
  Serious: Yes (Other)
  Sender: FDA-Public Use
  Company Number: US-ACTELION-A-US2016-143724

PATIENT
  Age: 51 Year
  Sex: Female
  Weight: 77.98 kg

DRUGS (3)
  1. TRACLEER [Suspect]
     Active Substance: BOSENTAN
     Indication: PULMONARY ARTERIAL HYPERTENSION
     Dosage: 125 MG, BID
     Route: 048
     Dates: start: 20141215
  2. LYRICA [Concomitant]
     Active Substance: PREGABALIN
  3. UPTRAVI [Suspect]
     Active Substance: SELEXIPAG
     Indication: PULMONARY ARTERIAL HYPERTENSION
     Dosage: 200 MCG, BID
     Route: 048
     Dates: start: 20160902

REACTIONS (11)
  - Transplant evaluation [Unknown]
  - Asthenia [Unknown]
  - Syncope [Unknown]
  - Feeling abnormal [Unknown]
  - Insomnia [Unknown]
  - Headache [Unknown]
  - Fatigue [Unknown]
  - Abnormal dreams [Unknown]
  - Diarrhoea [Unknown]
  - Arthralgia [Unknown]
  - Dyspnoea [Unknown]

NARRATIVE: CASE EVENT DATE: 20160928
